FAERS Safety Report 8444777-7 (Version None)
Quarter: 2012Q2

REPORT INFORMATION
  Report Type: 
  Country: None (occurrence: None)
  Receive Date: 20120618
  Receipt Date: 20120608
  Transmission Date: 20120825
  Serious: Yes (Other)
  Sender: FDA-Public Use
  Company Number: IT-ASTRAZENECA-2012SE38981

PATIENT
  Age: 48 Year
  Sex: Female

DRUGS (3)
  1. FASLODEX [Suspect]
     Indication: BREAST CANCER METASTATIC
     Route: 030
  2. ROYAL JELLY [Concomitant]
  3. YEAST [Concomitant]

REACTIONS (4)
  - RASH GENERALISED [None]
  - SCIATICA [None]
  - GAIT DISTURBANCE [None]
  - THROAT TIGHTNESS [None]
